FAERS Safety Report 18649975 (Version 1)
Quarter: 2020Q4

REPORT INFORMATION
  Report Type: Spontaneous
  Country: PL (occurrence: PL)
  Receive Date: 20201222
  Receipt Date: 20201222
  Transmission Date: 20210114
  Serious: Yes (Other)
  Sender: FDA-Public Use
  Company Number: NVSC2020PL332494

PATIENT
  Age: 14 Year
  Sex: Female
  Weight: 62 kg

DRUGS (3)
  1. VORICONAZOLE. [Suspect]
     Active Substance: VORICONAZOLE
     Indication: PROPHYLAXIS
     Dosage: 400 MG, QD (200 MILLIGRAM, TWO TIMES A DAY)
     Route: 065
     Dates: start: 20200903
  2. CICLOSPORIN [Suspect]
     Active Substance: CYCLOSPORINE
     Indication: PRODUCT USED FOR UNKNOWN INDICATION
     Dosage: 120 MG, QD (60 MILLIGRAM, 2 TIMES A DAY)(TABLET)
     Route: 065
     Dates: start: 20200915
  3. HEVIRAN [Suspect]
     Active Substance: ACYCLOVIR
     Indication: PROPHYLAXIS
     Dosage: 1200 MG, QD (400 MILLIGRAM, 3 TIMES A DAY)
     Route: 048
     Dates: start: 20200903

REACTIONS (2)
  - Product administered to patient of inappropriate age [Unknown]
  - Pneumonia [Unknown]

NARRATIVE: CASE EVENT DATE: 20200915
